FAERS Safety Report 21394030 (Version 1)
Quarter: 2022Q3

REPORT INFORMATION
  Report Type: Spontaneous
  Country: GB (occurrence: None)
  Receive Date: 20220930
  Receipt Date: 20220930
  Transmission Date: 20221027
  Serious: Yes (Other)
  Sender: FDA-Public Use
  Company Number: 2022A328318

PATIENT
  Age: 79 Year
  Sex: Female
  Weight: 62 kg

DRUGS (12)
  1. SYMBICORT [Suspect]
     Active Substance: BUDESONIDE\FORMOTEROL FUMARATE DIHYDRATE
     Dosage: 200MICROGRAMS/DOSE / 6MICROGRAMS/DOSE
     Route: 055
     Dates: start: 20220825
  2. ATORVASTATIN [Concomitant]
     Active Substance: ATORVASTATIN
     Indication: Ill-defined disorder
     Dosage: TAKE ONE DAILY
     Route: 065
     Dates: start: 20220125
  3. BUDESONIDE [Concomitant]
     Active Substance: BUDESONIDE
     Indication: Ill-defined disorder
     Dosage: 1 PUFF TWICE DAILY
     Route: 065
     Dates: start: 20220825, end: 20220825
  4. ESTRIOL [Concomitant]
     Active Substance: ESTRIOL
     Indication: Ill-defined disorder
     Dosage: APPLY AT NIGHT TWICE A WEEK.
     Route: 065
     Dates: start: 20220816, end: 20220817
  5. FERROUS FUMARATE [Concomitant]
     Active Substance: FERROUS FUMARATE
     Indication: Ill-defined disorder
     Dosage: 2X5ML SPOON TWICE DAILY (NEEDS TOT AKE FOR 3 MO...
     Route: 065
     Dates: start: 20210824
  6. FLUOXETINE [Concomitant]
     Active Substance: FLUOXETINE HYDROCHLORIDE
     Indication: Ill-defined disorder
     Dosage: TAKE 2 DAILY
     Route: 065
     Dates: start: 20210121
  7. FLUTICASONE PROPIONATE [Concomitant]
     Active Substance: FLUTICASONE PROPIONATE
     Indication: Ill-defined disorder
     Dosage: USE AS DIRECTED
     Route: 065
     Dates: start: 20210811
  8. POTASSIUM BICARBONATE\SODIUM ALGINATE [Concomitant]
     Active Substance: POTASSIUM BICARBONATE\SODIUM ALGINATE
     Indication: Ill-defined disorder
     Dosage: 5ML - 10ML 4 TIMES/DAY
     Route: 065
     Dates: start: 20210121
  9. OMEPRAZOLE [Concomitant]
     Active Substance: OMEPRAZOLE
     Indication: Ill-defined disorder
     Dosage: TAKE ONE DAILY FOR ACID/INDIGESTION
     Route: 065
     Dates: start: 20210121
  10. QVAR [Concomitant]
     Active Substance: BECLOMETHASONE DIPROPIONATE
     Indication: Ill-defined disorder
     Dosage: INHALE 1 DOSE TWICE DAILY
     Route: 065
     Dates: start: 20210811
  11. SENNOSIDES [Concomitant]
     Active Substance: SENNOSIDES
     Indication: Ill-defined disorder
     Dosage: 2X5ML SPOON AT NIGHT
     Route: 065
     Dates: start: 20210121
  12. TERBUTALINE [Concomitant]
     Active Substance: TERBUTALINE
     Indication: Ill-defined disorder
     Dosage: INHALE 1 DOSE AS NEEDED
     Route: 065
     Dates: start: 20210811

REACTIONS (3)
  - Dyspnoea [Recovered/Resolved]
  - Palpitations [Recovered/Resolved]
  - Muscle spasms [Recovered/Resolved]
